FAERS Safety Report 23431324 (Version 2)
Quarter: 2024Q1

REPORT INFORMATION
  Report Type: Spontaneous
  Country: JP (occurrence: JP)
  Receive Date: 20240123
  Receipt Date: 20240202
  Transmission Date: 20240410
  Serious: Yes (Death, Hospitalization)
  Sender: FDA-Public Use
  Company Number: JP-CHUGAI-2024001285AA

PATIENT
  Age: 70 Year
  Sex: Male
  Weight: 68.2 kg

DRUGS (9)
  1. TECENTRIQ [Suspect]
     Active Substance: ATEZOLIZUMAB
     Indication: Sarcomatoid carcinoma of the lung
     Route: 065
     Dates: start: 20231102, end: 20231128
  2. CARBOPLATIN [Suspect]
     Active Substance: CARBOPLATIN
     Indication: Sarcomatoid carcinoma of the lung
     Dosage: UNK
     Route: 065
     Dates: start: 20231102, end: 20231128
  3. PACLITAXEL [Suspect]
     Active Substance: PACLITAXEL
     Indication: Sarcomatoid carcinoma of the lung
     Dosage: UNK
     Route: 065
     Dates: start: 20231102, end: 20231128
  4. BEVACIZUMAB [Concomitant]
     Active Substance: BEVACIZUMAB
     Indication: Sarcomatoid carcinoma of the lung
     Dosage: UNK
     Dates: start: 20231102, end: 20231128
  5. ANAMORELIN HYDROCHLORIDE [Concomitant]
     Active Substance: ANAMORELIN HYDROCHLORIDE
     Dosage: UNK
     Dates: start: 20231031, end: 20231207
  6. NAPROXEN SODIUM [Concomitant]
     Active Substance: NAPROXEN\NAPROXEN SODIUM
     Dosage: UNK
     Dates: start: 20231117, end: 20231210
  7. ZINC [Concomitant]
     Active Substance: PYRITHIONE ZINC\ZINC\ZINC CHLORIDE
     Dosage: UNK
     Dates: start: 20231127, end: 20231211
  8. LANSOPRAZOLE [Concomitant]
     Active Substance: LANSOPRAZOLE
     Dosage: UNK
     Dates: start: 20231121, end: 20231210
  9. VIBEGRON [Concomitant]
     Active Substance: VIBEGRON
     Dosage: UNK
     Dates: start: 20231115, end: 20231207

REACTIONS (4)
  - Cytokine release syndrome [Fatal]
  - White blood cell count decreased [Recovered/Resolved]
  - Febrile neutropenia [Recovering/Resolving]
  - Off label use [Unknown]

NARRATIVE: CASE EVENT DATE: 20231206
